FAERS Safety Report 6368172-X (Version None)
Quarter: 2009Q3

REPORT INFORMATION
  Report Type: 
  Country: None (occurrence: None)
  Receive Date: 20090916
  Receipt Date: 20090916
  Transmission Date: 20100115
  Serious: Yes (Other)
  Sender: FDA-Public Use
  Company Number: None

PATIENT
  Sex: Female
  Weight: 150 kg

DRUGS (1)
  1. SUMATRIPTAN SUCCINATE [Suspect]
     Indication: MIGRAINE
     Dosage: 50MG. PRN 047
     Dates: start: 20090301

REACTIONS (7)
  - DIZZINESS [None]
  - DRUG INEFFECTIVE [None]
  - FEELING DRUNK [None]
  - NAUSEA [None]
  - NO THERAPEUTIC RESPONSE [None]
  - PRODUCT SUBSTITUTION ISSUE [None]
  - SENSATION OF HEAVINESS [None]
